FAERS Safety Report 13080540 (Version 1)
Quarter: 2017Q1

REPORT INFORMATION
  Report Type: Spontaneous
  Country: JP (occurrence: JP)
  Receive Date: 20170103
  Receipt Date: 20170103
  Transmission Date: 20170428
  Serious: Yes (Other)
  Sender: FDA-Public Use
  Company Number: JP-CORDEN PHARMA LATINA S.P.A.-JP-2016COR000262

PATIENT
  Age: 4 Year
  Sex: Male

DRUGS (1)
  1. ETOPOSIDE. [Suspect]
     Active Substance: ETOPOSIDE
     Indication: ACUTE MONOCYTIC LEUKAEMIA
     Dosage: UNK

REACTIONS (5)
  - Hyperuricaemia [Recovered/Resolved]
  - Hyperphosphataemia [Recovered/Resolved]
  - Tumour lysis syndrome [Recovered/Resolved]
  - Thrombocytosis [Recovered/Resolved]
  - Blood lactate dehydrogenase increased [Recovered/Resolved]
